FAERS Safety Report 12466926 (Version 5)
Quarter: 2018Q1

REPORT INFORMATION
  Report Type: Report from Study
  Country: BR (occurrence: BR)
  Receive Date: 20160615
  Receipt Date: 20180215
  Transmission Date: 20180508
  Serious: Yes (Other)
  Sender: FDA-Public Use
  Company Number: PHHY2016BR079785

PATIENT
  Sex: Female
  Weight: 64 kg

DRUGS (5)
  1. ZOMETA [Suspect]
     Active Substance: ZOLEDRONIC ACID
     Indication: PANCREATIC DISORDER
     Route: 065
  2. ZOMETA [Suspect]
     Active Substance: ZOLEDRONIC ACID
     Indication: BONE DISORDER
  3. MYTEDOM [Concomitant]
     Active Substance: METHADONE HYDROCHLORIDE
     Indication: PAIN
     Route: 065
  4. SANDOSTATIN LAR DEPOT [Suspect]
     Active Substance: OCTREOTIDE ACETATE
     Indication: PANCREATIC NEUROENDOCRINE TUMOUR
     Dosage: 30 MG, QMO
     Route: 030
     Dates: start: 201405
  5. LYRICA [Concomitant]
     Active Substance: PREGABALIN
     Indication: NEUROPATHY PERIPHERAL
     Route: 065

REACTIONS (17)
  - Cerebrovascular accident [Unknown]
  - Body height decreased [Unknown]
  - Metastasis [Unknown]
  - Malaise [Unknown]
  - Decreased appetite [Unknown]
  - Dyspepsia [Unknown]
  - Cardiac disorder [Unknown]
  - Dizziness [Unknown]
  - Metastases to liver [Unknown]
  - Weight decreased [Unknown]
  - Abdominal pain [Recovering/Resolving]
  - Pyrexia [Recovering/Resolving]
  - Myocardial infarction [Unknown]
  - Metastases to abdominal cavity [Unknown]
  - Malignant neoplasm progression [Unknown]
  - Back pain [Recovering/Resolving]
  - Abdominal discomfort [Unknown]
